FAERS Safety Report 10063034 (Version 2)
Quarter: 2014Q2

REPORT INFORMATION
  Report Type: Spontaneous
  Country: CA (occurrence: CA)
  Receive Date: 20140407
  Receipt Date: 20140407
  Transmission Date: 20141212
  Serious: Yes (Death, Hospitalization, Other)
  Sender: FDA-Public Use
  Company Number: CA-BAXTER-2014BAX015222

PATIENT
  Age: 72 Year
  Sex: Female
  Weight: 100 kg

DRUGS (2)
  1. DIANEAL PD4 SOLUTION WITH 2.5% DEXTROSE AND 2.5 MEQ/L CALCIUM [Suspect]
     Indication: PERITONEAL DIALYSIS
     Dosage: 3 BAGS
     Route: 033
     Dates: start: 201301, end: 20140322
  2. EXTRANEAL [Suspect]
     Indication: PERITONEAL DIALYSIS
     Dosage: 1 BAG
     Route: 033
     Dates: start: 201301, end: 20140322

REACTIONS (8)
  - Gangrene [Fatal]
  - Multi-organ failure [Fatal]
  - Paralysis [Fatal]
  - Nephrolithiasis [Unknown]
  - Drug intolerance [Unknown]
  - Weight increased [Unknown]
  - Peritonitis [Unknown]
  - Abdominal distension [Unknown]
